FAERS Safety Report 10705089 (Version 1)
Quarter: 2015Q1

REPORT INFORMATION
  Report Type: Spontaneous
  Country: US (occurrence: None)
  Receive Date: 20150109
  Receipt Date: 20150109
  Transmission Date: 20150721
  Serious: Yes (Hospitalization)
  Sender: FDA-Public Use
  Company Number: None

PATIENT
  Age: 77 Year
  Sex: Female
  Weight: 77.9 kg

DRUGS (2)
  1. LITHIUM [Suspect]
     Active Substance: LITHIUM CARBONATE
     Indication: BIPOLAR II DISORDER
     Route: 048
  2. SUCCINYLCHOLINE [Suspect]
     Active Substance: SUCCINYLCHOLINE
     Indication: ELECTROCONVULSIVE THERAPY
     Route: 042
     Dates: start: 20150105, end: 20150105

REACTIONS (3)
  - Unresponsive to stimuli [None]
  - Oxygen saturation decreased [None]
  - Areflexia [None]

NARRATIVE: CASE EVENT DATE: 20150105
